FAERS Safety Report 9257323 (Version 1)
Quarter: 2013Q2

REPORT INFORMATION
  Report Type: Spontaneous
  Country: US (occurrence: None)
  Receive Date: 20130424
  Receipt Date: 20130424
  Transmission Date: 20140414
  Serious: No
  Sender: FDA-Public Use
  Company Number: None

PATIENT
  Sex: Female

DRUGS (1)
  1. EXJADE 500MG NOVARTIS [Suspect]
     Indication: IRON OVERLOAD
     Dosage: 000MG
     Route: 048
     Dates: start: 20121022

REACTIONS (1)
  - Thirst [None]
